FAERS Safety Report 20322440 (Version 1)
Quarter: 2022Q1

REPORT INFORMATION
  Report Type: Spontaneous
  Country: US (occurrence: US)
  Receive Date: 20220111
  Receipt Date: 20220111
  Transmission Date: 20220423
  Serious: No
  Sender: FDA-Public Use
  Company Number: US-ABBVIE-21K-163-3948936-00

PATIENT
  Sex: Female
  Weight: 44.038 kg

DRUGS (7)
  1. DUOPA [Suspect]
     Active Substance: CARBIDOPA\LEVODOPA
     Indication: Product used for unknown indication
     Route: 050
     Dates: start: 201611
  2. DUOPA [Suspect]
     Active Substance: CARBIDOPA\LEVODOPA
     Dosage: DOSE DECREASED
     Route: 050
  3. MODERNA COVID-19 VACCINE [Concomitant]
     Active Substance: ELASOMERAN
     Indication: COVID-19 immunisation
     Dosage: MODERNA
     Route: 030
     Dates: start: 20210203, end: 20210203
  4. MODERNA COVID-19 VACCINE [Concomitant]
     Active Substance: ELASOMERAN
     Dosage: MODERNA
     Route: 030
     Dates: start: 20210303, end: 20210303
  5. SACCHAROMYCES CEREVISIAE [Concomitant]
     Active Substance: SACCHAROMYCES CEREVISIAE
     Indication: Dysbiosis
  6. ZINC [Concomitant]
     Active Substance: ZINC
     Indication: Product used for unknown indication
  7. ZONISAMIDE [Concomitant]
     Active Substance: ZONISAMIDE
     Indication: Dyskinesia

REACTIONS (8)
  - Stoma site erythema [Recovering/Resolving]
  - Stoma site discharge [Recovering/Resolving]
  - Confusional state [Not Recovered/Not Resolved]
  - Weight gain poor [Not Recovered/Not Resolved]
  - Dry throat [Not Recovered/Not Resolved]
  - Cough [Not Recovered/Not Resolved]
  - Dyskinesia [Not Recovered/Not Resolved]
  - Weight decreased [Not Recovered/Not Resolved]

NARRATIVE: CASE EVENT DATE: 20160101
